FAERS Safety Report 7788130-8 (Version None)
Quarter: 2011Q3

REPORT INFORMATION
  Report Type: 
  Country: None (occurrence: None)
  Receive Date: 20110930
  Receipt Date: 20110920
  Transmission Date: 20111222
  Serious: Yes (Hospitalization)
  Sender: FDA-Public Use
  Company Number: US-BAYER-2011-050343

PATIENT
  Age: 19 Year
  Sex: Female
  Weight: 46.712 kg

DRUGS (15)
  1. KLONOPIN [Concomitant]
     Indication: ANXIETY
     Dosage: AS NEEDED
     Route: 048
     Dates: start: 20090504
  2. AZITHROMYCIN [Concomitant]
     Dosage: 250 MG, UNK
     Dates: start: 20090522
  3. AMPICILLIN SODIUM [Concomitant]
     Dosage: 1.5 G, UNK
     Route: 042
     Dates: start: 20090624
  4. MOMETASONE FUROATE [Concomitant]
     Dosage: UNK
     Dates: start: 20090504
  5. ZOFRAN [Concomitant]
     Dosage: 4 MG, UNK
     Route: 042
     Dates: start: 20090623
  6. TORADOL [Concomitant]
     Dosage: UNK
     Route: 042
     Dates: start: 20090623
  7. SALINE [Concomitant]
     Dosage: UNK
     Route: 042
     Dates: start: 20090623
  8. OXYCODONE [Concomitant]
     Dosage: 5-325 MG
     Route: 048
  9. FENTANYL [Concomitant]
     Dosage: 100 ?G, UNK
     Route: 042
     Dates: start: 20090624
  10. YAZ [Suspect]
     Indication: CONTRACEPTION
     Dosage: UNK
     Dates: start: 20080101, end: 20090101
  11. VERSED [Concomitant]
     Dosage: 2 MG, UNK
     Route: 042
     Dates: start: 20090624
  12. GLUCOCORTICOIDS [Concomitant]
     Dosage: UNK
     Route: 048
     Dates: start: 20090504
  13. UNASYN [Concomitant]
     Dosage: UNK UNK, TID
     Route: 042
     Dates: start: 20090623
  14. DILAUDID [Concomitant]
     Dosage: UNK
     Dates: start: 20090623
  15. PROPOFOL [Concomitant]
     Dosage: 100 ML, UNK
     Route: 042
     Dates: start: 20090624

REACTIONS (5)
  - PAIN [None]
  - CHOLECYSTITIS CHRONIC [None]
  - CHOLECYSTECTOMY [None]
  - BILE DUCT STONE [None]
  - INJURY [None]
